FAERS Safety Report 21623246 (Version 1)
Quarter: 2022Q4

REPORT INFORMATION
  Report Type: Spontaneous
  Country: CH (occurrence: CH)
  Receive Date: 20221121
  Receipt Date: 20221121
  Transmission Date: 20230113
  Serious: Yes (Other)
  Sender: FDA-Public Use
  Company Number: CH-MYLANLABS-2022M1129489

PATIENT
  Sex: Male

DRUGS (2)
  1. AZACITIDINE [Suspect]
     Active Substance: AZACITIDINE
     Indication: Myelodysplastic syndrome
     Dosage: 98 MILLIGRAM, 1-5 AND 8-9
     Route: 065
     Dates: start: 20220820
  2. AZACITIDINE [Suspect]
     Active Substance: AZACITIDINE
     Indication: Acute myeloid leukaemia

REACTIONS (5)
  - Incorrect dose administered [Unknown]
  - Product reconstitution quality issue [Unknown]
  - Product preparation error [Unknown]
  - Product storage error [Unknown]
  - No adverse event [Unknown]
